FAERS Safety Report 7535614-3 (Version None)
Quarter: 2011Q2

REPORT INFORMATION
  Report Type: 
  Country: None (occurrence: None)
  Receive Date: 20110609
  Receipt Date: 20110601
  Transmission Date: 20111010
  Serious: Yes (Hospitalization, Other)
  Sender: FDA-Public Use
  Company Number: CH-BAYER-2011-039129

PATIENT
  Age: 45 Year
  Sex: Female
  Weight: 54 kg

DRUGS (4)
  1. MIRENA [Suspect]
     Indication: MENORRHAGIA
  2. CITALOPRAM HYDROBROMIDE [Concomitant]
     Indication: BLOOD CHOLESTEROL INCREASED
  3. MIRENA [Suspect]
     Indication: DYSMENORRHOEA
     Dosage: UNK
     Route: 015
     Dates: start: 20060630
  4. ASPIRIN [Concomitant]

REACTIONS (1)
  - CEREBROVASCULAR ACCIDENT [None]
